FAERS Safety Report 12595738 (Version 1)
Quarter: 2016Q3

REPORT INFORMATION
  Report Type: Spontaneous
  Country: DE (occurrence: DE)
  Receive Date: 20160727
  Receipt Date: 20160727
  Transmission Date: 20161109
  Serious: Yes (Congenital Anomaly)
  Sender: FDA-Public Use
  Company Number: DE-SUN PHARMACEUTICAL INDUSTRIES LTD-2016RR-120874

PATIENT
  Sex: Male
  Weight: 3.11 kg

DRUGS (6)
  1. AMLODIPINE [Suspect]
     Active Substance: AMLODIPINE BESYLATE
     Indication: HYPERTENSION
     Dosage: 10 MG, DAILY, 0-39.2 GESTATIONAL WEEK
     Route: 064
  2. METHYLDOPA. [Suspect]
     Active Substance: METHYLDOPA
     Indication: HYPERTENSION
     Dosage: 6-20.3 GESTATIONAL WEEK
     Route: 064
  3. EXFORGE [Concomitant]
     Active Substance: AMLODIPINE BESYLATE\VALSARTAN
     Indication: HYPERTENSION
     Dosage: 160 MG, DAILY; 0-6 GESTATIONAL WEEK
     Route: 064
  4. BISOPROLOL [Concomitant]
     Active Substance: BISOPROLOL
     Indication: HYPERTENSION
     Dosage: 5 MG, DAILY; 20.3-39.3 GW
     Route: 064
  5. VENLAFAXINE [Suspect]
     Active Substance: VENLAFAXINE HYDROCHLORIDE
     Indication: PERINATAL DEPRESSION
     Dosage: 0-39.2 GESTATIONAL WEEK
     Route: 064
     Dates: start: 20150525, end: 20160224
  6. FEMIBION SCHWANGERSCHAFT 2 [Concomitant]
     Indication: VITAMIN SUPPLEMENTATION
     Dosage: 0.4 MG, DAILY; 15-34 GW
     Route: 064

REACTIONS (2)
  - Atrial septal defect [Recovering/Resolving]
  - Aortic valve stenosis [Not Recovered/Not Resolved]
